FAERS Safety Report 7270848-7 (Version None)
Quarter: 2011Q1

REPORT INFORMATION
  Report Type: 
  Country: None (occurrence: None)
  Receive Date: 20110202
  Receipt Date: 20110124
  Transmission Date: 20110831
  Serious: Yes (Other)
  Sender: FDA-Public Use
  Company Number: JP-ASTRAZENECA-2010SE52960

PATIENT
  Age: 15720 Day
  Sex: Female
  Weight: 47 kg

DRUGS (6)
  1. ATROPINE [Concomitant]
     Indication: PREMEDICATION
     Route: 030
     Dates: start: 20090902, end: 20090902
  2. DIPRIVAN [Suspect]
     Indication: INDUCTION AND MAINTENANCE OF ANAESTHESIA
     Dosage: 20MG - 4MG/KG/HR
     Route: 042
     Dates: start: 20090902, end: 20090902
  3. ULTIVA [Concomitant]
     Indication: ANALGESIC THERAPY
     Dosage: 0.25MG/KG/HR
     Route: 042
     Dates: start: 20090902, end: 20090902
  4. ESLAX [Concomitant]
     Indication: HYPOTONIA
     Route: 042
     Dates: start: 20090902, end: 20090902
  5. DROPERIDOL [Concomitant]
     Route: 042
     Dates: start: 20090902, end: 20090902
  6. DORMICUM [Concomitant]
     Indication: PREMEDICATION
     Route: 030
     Dates: start: 20090902, end: 20090902

REACTIONS (1)
  - ASTHMA [None]
